FAERS Safety Report 4948886-6 (Version None)
Quarter: 2006Q1

REPORT INFORMATION
  Report Type: 
  Country: None (occurrence: None)
  Receive Date: 20060321
  Receipt Date: 20060306
  Transmission Date: 20060701
  Serious: Yes (Hospitalization)
  Sender: FDA-Public Use
  Company Number: HQWYE165206MAR06

PATIENT
  Sex: Female
  Weight: 44 kg

DRUGS (14)
  1. ENBREL [Suspect]
     Indication: RHEUMATOID ARTHRITIS
     Route: 058
     Dates: start: 20051202, end: 20051213
  2. SULFASALAZINE [Concomitant]
     Dates: start: 20051028
  3. BUCILLAMINE [Concomitant]
     Dates: start: 20051110
  4. MOBIC [Concomitant]
     Indication: RHEUMATOID ARTHRITIS
     Dosage: UNKNOWN
  5. PREDNISOLONE [Concomitant]
     Indication: RHEUMATOID ARTHRITIS
     Dosage: UNKNOWN
  6. ISCOTIN [Concomitant]
     Dosage: UNKNOWN
  7. LANSOPRAZOLE [Concomitant]
     Dosage: UNKNOWN
  8. MUCOSTA [Concomitant]
     Dosage: UNKNOWN
  9. FOSAMAX [Concomitant]
     Dosage: UNKNOWN
  10. TIZANIDINE HCL [Concomitant]
     Dosage: UNKNOWN
  11. CARBIDOPA [Concomitant]
     Dosage: UNKNOWN
  12. ACETYLSALICYLIC ACID SRT [Concomitant]
     Dosage: UNKNOWN
  13. MAGNESIUM OXIDE [Concomitant]
     Dosage: UNKNOWN
  14. BROTIZOLAM [Concomitant]
     Dosage: UNKNOWN

REACTIONS (1)
  - RESTLESSNESS [None]
